FAERS Safety Report 9017505 (Version 3)
Quarter: 2013Q3

REPORT INFORMATION
  Report Type: Report from Study
  Country: GB (occurrence: GB)
  Receive Date: 20130117
  Receipt Date: 20130719
  Transmission Date: 20140515
  Serious: Yes (Other)
  Sender: FDA-Public Use
  Company Number: GB-PFIZER INC-2013006532

PATIENT
  Age: 16 Year
  Sex: Female
  Weight: 53.6 kg

DRUGS (19)
  1. CISPLATIN [Suspect]
     Indication: OSTEOSARCOMA
     Dosage: 63 MG, 1X/DAY
     Route: 042
     Dates: start: 20120417, end: 20120420
  2. MYOCET [Suspect]
     Indication: OSTEOSARCOMA
     Dosage: 59 MG, 1X/DAY
     Route: 042
     Dates: start: 20120417, end: 20120419
  3. ONDANSETRON HYDROCHLORIDE [Suspect]
     Indication: PROPHYLAXIS OF NAUSEA AND VOMITING
     Dosage: 8 MG, 1X/DAY
     Route: 048
     Dates: start: 20120417, end: 20120417
  4. ONDANSETRON HYDROCHLORIDE [Suspect]
     Dosage: 8 MG, 2X/DAY
     Route: 048
     Dates: start: 20120418, end: 20120420
  5. APREPITANT [Suspect]
     Indication: PROPHYLAXIS OF NAUSEA AND VOMITING
     Dosage: 125 MG, UNK
     Route: 048
     Dates: start: 20120417, end: 20120417
  6. APREPITANT [Suspect]
     Dosage: 80 MG, UNK
     Route: 048
     Dates: start: 20120418, end: 20120419
  7. DEXAMETHASONE SODIUM PHOSPHATE [Suspect]
     Indication: PROPHYLAXIS OF NAUSEA AND VOMITING
     Dosage: 12 ML, 1X/DAY
     Route: 041
     Dates: start: 20120417, end: 20120417
  8. DEXAMETHASONE SODIUM PHOSPHATE [Suspect]
     Dosage: 15 ML, 1X/DAY
     Route: 042
     Dates: start: 20120418, end: 20120420
  9. LACTULOSE [Concomitant]
     Indication: CONSTIPATION
     Dosage: 10 ML, UNK
     Route: 065
     Dates: start: 20120418
  10. LACTULOSE [Concomitant]
     Dosage: 10 ML, 2X/DAY
     Route: 065
     Dates: start: 20120419
  11. LACTULOSE [Concomitant]
     Dosage: 10 ML, UNK
     Route: 065
     Dates: start: 20120420
  12. DIAZEPAM [Concomitant]
     Indication: SEDATION
     Dosage: 3 MG, UNK
     Route: 065
     Dates: start: 20120424
  13. DIHYDROCODEINE [Concomitant]
     Indication: PAIN MANAGEMENT
     Dosage: 30 MG, 2/UNSPECIFIED
     Route: 065
     Dates: start: 20120414, end: 20120415
  14. ONDANSETRON [Concomitant]
     Indication: NAUSEA
     Dosage: 8 MG, 2X/DAY
     Route: 042
     Dates: start: 20120414, end: 20120414
  15. LEVOMEPROMAZINE [Concomitant]
     Indication: VOMITING
     Dosage: 25 MG, 2X/DAY
     Route: 042
     Dates: start: 20120419, end: 20120419
  16. TETRACAINE [Concomitant]
     Indication: ANALGESIC THERAPY
     Dosage: DOSAGE FORM: CREAM, STRENGHT 1.5
     Route: 061
     Dates: start: 20120413, end: 20120413
  17. METOCLOPRAMIDE [Concomitant]
     Indication: VOMITING
     Dosage: 10 MG, 4X/DAY
     Route: 065
     Dates: start: 20120419, end: 20120419
  18. METOCLOPRAMIDE [Concomitant]
     Indication: NAUSEA
  19. ACETAMINOPHEN [Concomitant]
     Indication: ANALGESIC THERAPY
     Dosage: 1 G, 1X/DAY
     Route: 065
     Dates: start: 20120413, end: 20120418

REACTIONS (3)
  - Electrocardiogram T wave inversion [Recovered/Resolved]
  - Sinus arrhythmia [Recovered/Resolved]
  - Dyskinesia [Recovered/Resolved]
